FAERS Safety Report 18258230 (Version 1)
Quarter: 2020Q3

REPORT INFORMATION
  Report Type: Other
  Country: FR (occurrence: FR)
  Receive Date: 20200911
  Receipt Date: 20200911
  Transmission Date: 20201103
  Serious: Yes (Other)
  Sender: FDA-Public Use
  Company Number: FR-INCYTE CORPORATION-2020IN008540

PATIENT

DRUGS (1)
  1. JAKAVI [Suspect]
     Active Substance: RUXOLITINIB
     Indication: MYOCARDITIS
     Dosage: UNK
     Route: 048
     Dates: start: 20200716

REACTIONS (2)
  - Anaemia [Recovered/Resolved]
  - Haemolysis [Not Recovered/Not Resolved]

NARRATIVE: CASE EVENT DATE: 20200717
